FAERS Safety Report 5099421-6 (Version None)
Quarter: 2006Q3

REPORT INFORMATION
  Report Type: 
  Country: None (occurrence: None)
  Receive Date: 20060908
  Receipt Date: 20051121
  Transmission Date: 20061208
  Serious: Yes (Disabling, Other)
  Sender: FDA-Public Use
  Company Number: PHRM2005FR03032

PATIENT
  Age: 72 Year
  Sex: Male

DRUGS (3)
  1. ZOMETA [Suspect]
     Indication: MULTIPLE MYELOMA
     Dosage: 4 MG, QMO
     Route: 042
     Dates: start: 20030703, end: 20050819
  2. ALKERAN [Concomitant]
     Indication: MULTIPLE MYELOMA
  3. SOLUPRED [Concomitant]
     Indication: MULTIPLE MYELOMA

REACTIONS (2)
  - OSTEONECROSIS [None]
  - TOOTHACHE [None]
